FAERS Safety Report 8366941-8 (Version None)
Quarter: 2012Q1

REPORT INFORMATION
  Report Type: 
  Country: None (occurrence: None)
  Receive Date: 20120323
  Receipt Date: 20110406
  Transmission Date: 20120608
  Serious: Yes (Other)
  Sender: FDA-Public Use
  Company Number: 163-21880-11040780

PATIENT
  Age: 79 Year
  Sex: Male
  Weight: 61.6892 kg

DRUGS (8)
  1. WARFARIN SODIUM [Concomitant]
  2. OXYCONTIN [Concomitant]
  3. OXYCODONE (OXYCODONE) (TABLETS) [Concomitant]
  4. DEXAMETHASONE [Concomitant]
  5. MIRALAX (MACROGOL) (POWDER) [Concomitant]
  6. VELCADE [Concomitant]
  7. REVLIMID [Suspect]
     Indication: MULTIPLE MYELOMA
     Dosage: 25 MG, 1 IN 1 D, PO
     Route: 048
     Dates: start: 20100430
  8. SYNTHROID [Concomitant]

REACTIONS (1)
  - OEDEMA [None]
